FAERS Safety Report 4458976-2 (Version None)
Quarter: 2004Q3

REPORT INFORMATION
  Report Type: 
  Country: None (occurrence: None)
  Receive Date: 20040922
  Receipt Date: 20040922
  Transmission Date: 20050211
  Serious: Yes (Hospitalization)
  Sender: FDA-Public Use
  Company Number: None

PATIENT
  Age: 60 Year
  Sex: Female

DRUGS (1)
  1. WARFARIN SODIUM [Suspect]
     Dosage: PO
     Route: 048

REACTIONS (12)
  - CARDIAC FAILURE CONGESTIVE [None]
  - COMA [None]
  - GASTROINTESTINAL HAEMORRHAGE [None]
  - ILEUS [None]
  - INTERNATIONAL NORMALISED RATIO DECREASED [None]
  - MYOCARDIAL INFARCTION [None]
  - OXYGEN SATURATION ABNORMAL [None]
  - PANCREATITIS ACUTE [None]
  - RECTAL HAEMORRHAGE [None]
  - RENAL FAILURE ACUTE [None]
  - RESPIRATORY DISTRESS [None]
  - SPLENIC INFARCTION [None]
